FAERS Safety Report 8216798-0 (Version None)
Quarter: 2012Q1

REPORT INFORMATION
  Report Type: 
  Country: None (occurrence: None)
  Receive Date: 20120316
  Receipt Date: 20120313
  Transmission Date: 20120608
  Serious: Yes (Hospitalization, Other)
  Sender: FDA-Public Use
  Company Number: US-MERCK-1110USA02430

PATIENT
  Age: 57 Year
  Sex: Female

DRUGS (6)
  1. CALCIUM (UNSPECIFIED) [Concomitant]
     Indication: OSTEOPENIA
     Route: 065
     Dates: start: 19900101, end: 20100101
  2. FOSAMAX [Suspect]
     Indication: OSTEOPENIA
     Route: 048
     Dates: start: 19960101, end: 20010701
  3. FOSAMAX [Suspect]
     Route: 048
  4. HORMONES (UNSPECIFIED) [Concomitant]
     Route: 065
     Dates: start: 19940101, end: 20010101
  5. RECLAST [Suspect]
     Indication: OSTEOPENIA
     Route: 042
     Dates: start: 20090610, end: 20100610
  6. FOSAMAX [Suspect]
     Route: 048
     Dates: start: 20010101, end: 20081001

REACTIONS (10)
  - FRACTURE NONUNION [None]
  - NEPHROLITHIASIS [None]
  - BUNION [None]
  - PAIN [None]
  - FEMUR FRACTURE [None]
  - DEVICE FAILURE [None]
  - ENDOMETRIAL CANCER [None]
  - BLOOD CHOLESTEROL INCREASED [None]
  - HYPERTENSION [None]
  - LOW TURNOVER OSTEOPATHY [None]
